FAERS Safety Report 4642038-5 (Version None)
Quarter: 2005Q2

REPORT INFORMATION
  Report Type: 
  Country: None (occurrence: None)
  Receive Date: 20050420
  Receipt Date: 20050407
  Transmission Date: 20051028
  Serious: Yes (Other)
  Sender: FDA-Public Use
  Company Number: 2005056516

PATIENT
  Age: 23 Year
  Sex: Female
  Weight: 88.4514 kg

DRUGS (1)
  1. ZITHROMAX [Suspect]
     Indication: SINUSITIS
     Dosage: 500 MG (500 MG, 1 IN 1 D), ORAL
     Route: 048
     Dates: start: 20050123, end: 20050127

REACTIONS (8)
  - ARTHRALGIA [None]
  - ARTHRITIS [None]
  - DIFFICULTY IN WALKING [None]
  - JOINT STIFFNESS [None]
  - MOVEMENT DISORDER [None]
  - PAIN IN EXTREMITY [None]
  - URTICARIA [None]
  - VASCULITIS [None]
